FAERS Safety Report 20618184 (Version 1)
Quarter: 2022Q1

REPORT INFORMATION
  Report Type: Spontaneous
  Country: DE (occurrence: DE)
  Receive Date: 20220321
  Receipt Date: 20220321
  Transmission Date: 20220424
  Serious: Yes (Other)
  Sender: FDA-Public Use
  Company Number: DE-GILEAD-2022-0574264

PATIENT
  Age: 29 Year
  Sex: Female

DRUGS (3)
  1. ODEFSEY [Suspect]
     Active Substance: EMTRICITABINE\RILPIVIRINE HYDROCHLORIDE\TENOFOVIR ALAFENAMIDE FUMARATE
     Indication: HIV infection
     Dosage: UNK
     Route: 065
     Dates: start: 201812
  2. TRUVADA [Suspect]
     Active Substance: EMTRICITABINE\TENOFOVIR DISOPROXIL FUMARATE
     Indication: HIV infection
     Dosage: 1 DOSAGE FORM, QD
     Route: 065
     Dates: start: 20170901, end: 201812
  3. EFAVIRENZ [Concomitant]
     Active Substance: EFAVIRENZ
     Dosage: 400 MG, QD
     Dates: start: 20170901

REACTIONS (18)
  - Loss of consciousness [Unknown]
  - Hemiparesis [Unknown]
  - Central nervous system lesion [Unknown]
  - Cervical dysplasia [Unknown]
  - Depressed mood [Unknown]
  - Sleep disorder [Unknown]
  - Thinking abnormal [Unknown]
  - Fear of death [Unknown]
  - Peroneal nerve palsy [Unknown]
  - Iron deficiency anaemia [Unknown]
  - Toxoplasmosis [Unknown]
  - Herpes zoster [Unknown]
  - Herpes zoster [Unknown]
  - Panic reaction [Unknown]
  - Anxiety [Unknown]
  - Depression [Not Recovered/Not Resolved]
  - Herpes zoster [Unknown]
  - COVID-19 [Unknown]

NARRATIVE: CASE EVENT DATE: 20180101
